FAERS Safety Report 6203267-2 (Version None)
Quarter: 2009Q2

REPORT INFORMATION
  Report Type: 
  Country: None (occurrence: None)
  Receive Date: 20090527
  Receipt Date: 20090520
  Transmission Date: 20091009
  Serious: Yes (Death, Other)
  Sender: FDA-Public Use
  Company Number: US-CELGENEUS-163-21880-09040173

PATIENT
  Sex: Male

DRUGS (2)
  1. REVLIMID [Suspect]
     Indication: CARDIAC AMYLOIDOSIS
     Route: 048
     Dates: start: 20080801, end: 20090201
  2. REVLIMID [Suspect]
     Route: 048
     Dates: start: 20080501

REACTIONS (3)
  - INFLUENZA [None]
  - PNEUMONIA [None]
  - RESPIRATORY FAILURE [None]
